FAERS Safety Report 6111061-6 (Version None)
Quarter: 2009Q1

REPORT INFORMATION
  Report Type: 
  Country: None (occurrence: None)
  Receive Date: 20090311
  Receipt Date: 20090304
  Transmission Date: 20090719
  Serious: Yes (Hospitalization)
  Sender: FDA-Public Use
  Company Number: JP-ASTRAZENECA-2009AP01051

PATIENT
  Age: 74 Year
  Sex: Female
  Weight: 48 kg

DRUGS (12)
  1. IRESSA [Suspect]
     Indication: LUNG ADENOCARCINOMA
     Route: 048
     Dates: start: 20081218, end: 20090106
  2. IRESSA [Suspect]
     Route: 048
     Dates: start: 20090111, end: 20090123
  3. RINDERON [Suspect]
     Route: 042
     Dates: end: 20090120
  4. LOXOPROFEN [Concomitant]
     Route: 048
     Dates: end: 20090106
  5. MAGMITT [Concomitant]
     Route: 048
     Dates: end: 20090106
  6. EXCELASE [Concomitant]
     Route: 048
     Dates: end: 20090106
  7. GASTER [Concomitant]
     Route: 048
  8. DEPAKENE [Concomitant]
     Route: 048
  9. BFLUID [Concomitant]
     Route: 042
  10. GLYCEREB [Concomitant]
     Route: 042
  11. SERENACE [Concomitant]
     Route: 042
  12. TAZOBACTAM:PIPERACILLIN [Concomitant]
     Route: 042

REACTIONS (2)
  - MELAENA [None]
  - PROCTITIS ULCERATIVE [None]
